FAERS Safety Report 14710008 (Version 2)
Quarter: 2018Q2

REPORT INFORMATION
  Report Type: Report from Study
  Country: US (occurrence: US)
  Receive Date: 20180403
  Receipt Date: 20180418
  Transmission Date: 20180711
  Serious: Yes (Other)
  Sender: FDA-Public Use
  Company Number: US-PFIZER INC-2018123892

PATIENT
  Age: 42 Year
  Sex: Female

DRUGS (2)
  1. SUTENT [Suspect]
     Active Substance: SUNITINIB MALATE
     Indication: BREAST CANCER
  2. SUTENT [Suspect]
     Active Substance: SUNITINIB MALATE
     Indication: RENAL CELL CARCINOMA
     Dosage: 50 MG, CYCLIC (DAILY/4 WEEKS ON AND 2 WEEKS OFF)
     Route: 048
     Dates: start: 20180321, end: 20180327

REACTIONS (6)
  - Sinus disorder [Unknown]
  - Heart rate decreased [Recovering/Resolving]
  - Bradycardia [Unknown]
  - Hypertension [Recovering/Resolving]
  - Renal impairment [Unknown]
  - Headache [Not Recovered/Not Resolved]

NARRATIVE: CASE EVENT DATE: 201803
